FAERS Safety Report 7347941-3 (Version None)
Quarter: 2011Q1

REPORT INFORMATION
  Report Type: 
  Country: None (occurrence: None)
  Receive Date: 20110311
  Receipt Date: 20110307
  Transmission Date: 20110831
  Serious: Yes (Other)
  Sender: FDA-Public Use
  Company Number: CHPA2011US03751

PATIENT
  Sex: Female
  Weight: 52.154 kg

DRUGS (17)
  1. IBUPROFEN [Concomitant]
     Indication: TENDONITIS
     Dosage: 600 MG, PRN
     Route: 048
     Dates: start: 20101001
  2. CALCIUM [Concomitant]
     Indication: SUPPLEMENTATION THERAPY
     Dosage: 600 MG, TID
     Route: 048
  3. FISH OIL [Concomitant]
     Indication: SUPPLEMENTATION THERAPY
     Dosage: 300 MG, QD
     Route: 048
  4. DOXEPIN [Concomitant]
     Indication: BIPOLAR DISORDER
  5. PRIVATE LABEL [Suspect]
     Indication: SMOKING CESSATION THERAPY
     Dosage: 21 MG, UNK
     Route: 062
     Dates: start: 20110216
  6. GABAPENTIN [Concomitant]
     Indication: ANXIETY
  7. DOXEPIN [Concomitant]
     Indication: DEPRESSION
     Dosage: 1 DF, QID
     Route: 048
     Dates: start: 19910101
  8. NICOTINE [Suspect]
     Indication: SMOKING CESSATION THERAPY
     Dosage: 1 DF, TID
     Route: 048
     Dates: start: 20110216
  9. GABAPENTIN [Concomitant]
     Indication: NEURALGIA
     Dosage: 300 MG, BID
     Route: 048
  10. MULTIVITAMINS, COMBINATIONS [Concomitant]
     Indication: SUPPLEMENTATION THERAPY
     Dosage: 1 DF, QD
     Route: 048
  11. MAGNESIUM [Concomitant]
     Indication: SUPPLEMENTATION THERAPY
     Dosage: 1 DF, QHS
     Route: 048
  12. PRIVATE LABEL [Suspect]
     Dosage: 14 G, QD
     Route: 062
     Dates: start: 20110213, end: 20110215
  13. DOXEPIN [Concomitant]
     Indication: ANXIETY
  14. DIAZEPAM [Concomitant]
     Indication: SLEEP DISORDER
     Dosage: 5 MG, QHS
     Route: 048
  15. VITAMIN D [Concomitant]
     Indication: SUPPLEMENTATION THERAPY
     Dosage: 200 MG, BID ^FREQUENCY 9QD^
     Route: 048
  16. PROPRANOLOL [Concomitant]
     Indication: HYPERTENSION
     Dosage: 10 MG, QD
     Route: 048
     Dates: start: 20010101
  17. EVISTA [Concomitant]
     Indication: OSTEOARTHRITIS
     Dosage: 60 MG, QD
     Route: 048
     Dates: start: 20101001

REACTIONS (4)
  - TREATMENT NONCOMPLIANCE [None]
  - OVERDOSE [None]
  - SLEEP APNOEA SYNDROME [None]
  - THERAPEUTIC RESPONSE DECREASED [None]
